FAERS Safety Report 4927445-5 (Version None)
Quarter: 2006Q1

REPORT INFORMATION
  Report Type: 
  Country: None (occurrence: None)
  Receive Date: 20060228
  Receipt Date: 20060223
  Transmission Date: 20060701
  Serious: Yes (Hospitalization)
  Sender: FDA-Public Use
  Company Number: US-JNJFOC-20060205590

PATIENT
  Sex: Female
  Weight: 75.75 kg

DRUGS (13)
  1. INFLIXIMAB [Suspect]
     Indication: RHEUMATOID ARTHRITIS
     Route: 042
  2. METHOTREXATE [Concomitant]
  3. CELEBREX [Concomitant]
  4. AMBIEN [Concomitant]
  5. LORTAB [Concomitant]
  6. LORTAB [Concomitant]
  7. PLAQUENIL [Concomitant]
  8. ESTROGEN [Concomitant]
     Route: 062
  9. IBUPROFEN [Concomitant]
  10. CALCIUM GLUCONATE [Concomitant]
  11. ZINC [Concomitant]
  12. FOLIC ACID [Concomitant]
  13. MAGNESIUM [Concomitant]

REACTIONS (1)
  - OVARIAN CYST [None]
